FAERS Safety Report 5646474-X (Version None)
Quarter: 2008Q1

REPORT INFORMATION
  Report Type: 
  Country: None (occurrence: None)
  Receive Date: 20080303
  Receipt Date: 20080225
  Transmission Date: 20080703
  Serious: Yes (Other)
  Sender: FDA-Public Use
  Company Number: US-ALLERGAN-0802286US

PATIENT
  Sex: Male

DRUGS (3)
  1. REFRESH TEARS [Suspect]
     Indication: DRUG USE FOR UNKNOWN INDICATION
     Dosage: UNK, UNK
     Route: 047
     Dates: start: 20060101, end: 20060101
  2. REFRESH TEARS [Suspect]
     Dosage: UNK, UNK
     Route: 047
     Dates: end: 20071201
  3. OPTIVE [Concomitant]
     Indication: DRUG USE FOR UNKNOWN INDICATION
     Route: 047

REACTIONS (1)
  - MACULAR DEGENERATION [None]
